FAERS Safety Report 9628064 (Version 1)
Quarter: 2013Q4

REPORT INFORMATION
  Report Type: Spontaneous
  Country: IT (occurrence: IT)
  Receive Date: 20131016
  Receipt Date: 20131016
  Transmission Date: 20140711
  Serious: Yes (Other)
  Sender: FDA-Public Use
  Company Number: IT-MYLANLABS-2013S1022300

PATIENT
  Age: 32 Year
  Sex: Female

DRUGS (2)
  1. CLARITHROMYCIN [Suspect]
     Indication: RESPIRATORY TRACT INFECTION
     Route: 048
     Dates: start: 20130921, end: 20130924
  2. FOSTER /06206901/ [Concomitant]
     Indication: RESPIRATORY TRACT INFECTION
     Dosage: 100/6 MCG
     Route: 055
     Dates: start: 20130921, end: 20130925

REACTIONS (2)
  - Dysgeusia [Recovered/Resolved]
  - Oedema mucosal [Recovered/Resolved]
